FAERS Safety Report 5954892-5 (Version None)
Quarter: 2008Q4

REPORT INFORMATION
  Report Type: 
  Country: None (occurrence: None)
  Receive Date: 20081117
  Receipt Date: 20081107
  Transmission Date: 20090506
  Serious: Yes (Hospitalization, Disabling)
  Sender: FDA-Public Use
  Company Number: AU-NOVOPROD-281074

PATIENT
  Sex: Female

DRUGS (3)
  1. MIXTARD HUMAN 70/30 [Suspect]
     Indication: TYPE 1 DIABETES MELLITUS
  2. NOVORAPID FLEXPEN [Concomitant]
     Indication: TYPE 1 DIABETES MELLITUS
  3. LANTUS [Concomitant]
     Indication: TYPE 1 DIABETES MELLITUS

REACTIONS (4)
  - DIABETES MELLITUS INADEQUATE CONTROL [None]
  - FINGER AMPUTATION [None]
  - LEG AMPUTATION [None]
  - SCAR [None]
